FAERS Safety Report 9310191 (Version 1)
Quarter: 2013Q2

REPORT INFORMATION
  Report Type: Spontaneous
  Country: US (occurrence: US)
  Receive Date: 20130527
  Receipt Date: 20130527
  Transmission Date: 20140414
  Serious: No
  Sender: FDA-Public Use
  Company Number: US-009507513-1305USA009885

PATIENT
  Sex: Female

DRUGS (1)
  1. COZAAR [Suspect]
     Route: 048

REACTIONS (5)
  - Throat irritation [Unknown]
  - Hyperhidrosis [Unknown]
  - Pruritus [Unknown]
  - Cough [Unknown]
  - Insomnia [Unknown]
